FAERS Safety Report 6057714-X (Version None)
Quarter: 2009Q1

REPORT INFORMATION
  Report Type: 
  Country: None (occurrence: None)
  Receive Date: 20090129
  Receipt Date: 20090115
  Transmission Date: 20090719
  Serious: No
  Sender: FDA-Public Use
  Company Number: CA-ASTRAZENECA-2009UW01713

PATIENT
  Age: 56 Year
  Sex: Female

DRUGS (16)
  1. CRESTOR [Suspect]
     Route: 048
  2. ALLOPURINOL [Concomitant]
  3. ASPIRIN [Concomitant]
  4. CELLCEPT [Concomitant]
  5. COLACE [Concomitant]
  6. DIDRONEL [Concomitant]
  7. DIOVAN [Concomitant]
  8. FERROUS GLUCONATE [Concomitant]
  9. FOLIC ACID [Concomitant]
  10. LASIX [Concomitant]
  11. LEVEMIR [Concomitant]
  12. NOVORAPID [Concomitant]
  13. NU-COTRIMOX [Concomitant]
  14. POTASSIUM CHLORIDE [Concomitant]
  15. RANITIDINE [Concomitant]
  16. TICLID [Concomitant]

REACTIONS (3)
  - MUSCULOSKELETAL PAIN [None]
  - MYALGIA [None]
  - PAIN IN EXTREMITY [None]
